FAERS Safety Report 13418524 (Version 3)
Quarter: 2017Q2

REPORT INFORMATION
  Report Type: Spontaneous
  Country: US (occurrence: US)
  Receive Date: 20170406
  Receipt Date: 20170512
  Transmission Date: 20170830
  Serious: No
  Sender: FDA-Public Use
  Company Number: US-ACTELION-A-US2017-151823

PATIENT
  Age: 38 Year
  Sex: Male
  Weight: 72 kg

DRUGS (9)
  1. UPTRAVI [Suspect]
     Active Substance: SELEXIPAG
     Dosage: 400 MCG, UNK
     Route: 048
  2. UPTRAVI [Suspect]
     Active Substance: SELEXIPAG
     Dosage: 400 MCG, BID
     Route: 048
  3. UPTRAVI [Suspect]
     Active Substance: SELEXIPAG
     Indication: PULMONARY ARTERIAL HYPERTENSION
     Dosage: 800 MCG, UNK
     Route: 048
  4. UPTRAVI [Suspect]
     Active Substance: SELEXIPAG
     Dosage: 800 MCG, BID
     Route: 048
  5. AMBRISENTAN [Suspect]
     Active Substance: AMBRISENTAN
     Indication: PULMONARY ARTERIAL HYPERTENSION
     Dosage: 10 MG, QD
     Route: 048
  6. SILDENAFIL CITRATE. [Concomitant]
     Active Substance: SILDENAFIL CITRATE
  7. FOLIC ACID. [Concomitant]
     Active Substance: FOLIC ACID
  8. UPTRAVI [Suspect]
     Active Substance: SELEXIPAG
     Dosage: 600 MCG, BID
     Route: 048
  9. MULTIVITAMINS [Concomitant]
     Active Substance: VITAMINS

REACTIONS (10)
  - Diarrhoea [Unknown]
  - Nausea [Unknown]
  - Pain [Unknown]
  - Bone pain [Unknown]
  - Discomfort [Unknown]
  - Anxiety [Unknown]
  - Drug intolerance [Unknown]
  - Myalgia [Unknown]
  - Vomiting [Unknown]
  - Pain in extremity [Unknown]
